FAERS Safety Report 15376254 (Version 6)
Quarter: 2020Q1

REPORT INFORMATION
  Report Type: Report from Study
  Country: US (occurrence: US)
  Receive Date: 20180912
  Receipt Date: 20200131
  Transmission Date: 20200409
  Serious: Yes (Hospitalization, Other)
  Sender: FDA-Public Use
  Company Number: US-SA-2018SA249878

PATIENT
  Age: 60 Year
  Sex: Female

DRUGS (25)
  1. MODAFINIL. [Concomitant]
     Active Substance: MODAFINIL
     Dosage: 200 MG, QD
     Route: 065
  2. FAMOTIDINE. [Concomitant]
     Active Substance: FAMOTIDINE
     Dosage: 40 MG, QD
     Route: 065
  3. VITAMIN D3 [Concomitant]
     Active Substance: CHOLECALCIFEROL
     Dosage: 10000 U, QD
     Route: 065
  4. BIOTIN [Concomitant]
     Active Substance: BIOTIN
     Dosage: 300 MG, QD
     Route: 065
  5. VALTREX [Concomitant]
     Active Substance: VALACYCLOVIR HYDROCHLORIDE
     Dosage: 500 MG, BID
     Route: 065
  6. BACTRIM DS [Concomitant]
     Active Substance: SULFAMETHOXAZOLE\TRIMETHOPRIM
     Dosage: UNK UNK, QD
     Route: 065
  7. POTASSIUM CHLORIDE. [Concomitant]
     Active Substance: POTASSIUM CHLORIDE
     Dosage: UNK UNK, QD
     Route: 065
  8. LEVOTHYROXINE. [Concomitant]
     Active Substance: LEVOTHYROXINE
     Dosage: 137 MG, QD
     Route: 065
  9. COLCHICINE. [Concomitant]
     Active Substance: COLCHICINE
     Dosage: 0.6 MG, TID
     Route: 065
  10. TIZANIDINE. [Concomitant]
     Active Substance: TIZANIDINE
     Dosage: 2 MG, BID
     Route: 065
  11. CLOTIAZEPAM [Concomitant]
     Active Substance: CLOTIAZEPAM
     Dosage: 240 MG, QD
     Route: 065
  12. ALEMTUZUMAB [Suspect]
     Active Substance: ALEMTUZUMAB
     Dosage: 12 MG, QD
     Route: 041
     Dates: start: 20170515, end: 20170519
  13. BACLOFEN. [Concomitant]
     Active Substance: BACLOFEN
     Dosage: 20 MG, QID
     Route: 065
  14. ZOLOFT [Concomitant]
     Active Substance: SERTRALINE HYDROCHLORIDE
     Dosage: 100 MG, QD
     Route: 065
  15. ACTIGALL [Concomitant]
     Active Substance: URSODIOL
     Dosage: 300 MG, TID
     Route: 065
  16. CHLORTHALIDONE. [Concomitant]
     Active Substance: CHLORTHALIDONE
     Dosage: 12.5 MG, QD
     Route: 065
  17. PREGABALIN. [Concomitant]
     Active Substance: PREGABALIN
     Dosage: 100 MG, BID
     Route: 065
  18. WARFARIN [Concomitant]
     Active Substance: WARFARIN
     Dosage: 5 MG, QD
     Route: 065
  19. HYDRALAZINE [Concomitant]
     Active Substance: HYDRALAZINE HYDROCHLORIDE
     Dosage: 50 MG, TID
     Route: 065
  20. ISOSORBIDE MONONITRATE. [Concomitant]
     Active Substance: ISOSORBIDE MONONITRATE
     Dosage: 120 MG, QD
     Route: 065
  21. DONEPEZIL. [Concomitant]
     Active Substance: DONEPEZIL
     Dosage: 10 MG, QD
     Route: 065
  22. ALEMTUZUMAB [Suspect]
     Active Substance: ALEMTUZUMAB
     Indication: MULTIPLE SCLEROSIS
     Dosage: 12 MG, QD
     Route: 041
     Dates: start: 20180829, end: 20180831
  23. ESTRADIOL. [Concomitant]
     Active Substance: ESTRADIOL
     Dosage: 2 MG, QD
     Route: 065
  24. VALIUM [Concomitant]
     Active Substance: DIAZEPAM
     Dosage: 5 MG, HS
     Route: 065
  25. ZYRTEC [Concomitant]
     Active Substance: CETIRIZINE HYDROCHLORIDE
     Dosage: UNK UNK, QD
     Route: 065

REACTIONS (23)
  - Cystitis [Unknown]
  - Immune system disorder [Not Recovered/Not Resolved]
  - Paraesthesia [Unknown]
  - Peripheral swelling [Not Recovered/Not Resolved]
  - Sepsis [Recovered/Resolved]
  - Loss of consciousness [Recovered/Resolved]
  - Urinary tract infection [Unknown]
  - Feeling hot [Not Recovered/Not Resolved]
  - Pain in extremity [Not Recovered/Not Resolved]
  - Encephalitis [Unknown]
  - Urinary tract infection enterococcal [Not Recovered/Not Resolved]
  - Infusion site extravasation [Unknown]
  - Malaise [Not Recovered/Not Resolved]
  - Blood pressure decreased [Unknown]
  - Urinary tract infection [Recovered/Resolved]
  - Blood pressure increased [Unknown]
  - Blood urine present [Not Recovered/Not Resolved]
  - Arthritis infective [Unknown]
  - Arthralgia [Not Recovered/Not Resolved]
  - Insomnia [Unknown]
  - Body temperature increased [Not Recovered/Not Resolved]
  - Pyrexia [Not Recovered/Not Resolved]
  - Nosocomial infection [Not Recovered/Not Resolved]

NARRATIVE: CASE EVENT DATE: 201808
